FAERS Safety Report 8121969-8 (Version None)
Quarter: 2012Q1

REPORT INFORMATION
  Report Type: 
  Country: None (occurrence: None)
  Receive Date: 20120208
  Receipt Date: 20120125
  Transmission Date: 20120608
  Serious: Yes (Other)
  Sender: FDA-Public Use
  Company Number: US-UCBSA-046337

PATIENT
  Sex: Female
  Weight: 72.57 kg

DRUGS (5)
  1. ANTI CONVULSANTS [Concomitant]
  2. VIMPAT [Suspect]
     Dosage: 50 UNKNOWN UNITS
  3. SACLEXIN [Concomitant]
  4. FLECAINIDE ACETATE [Concomitant]
  5. VIMPAT [Suspect]
     Dosage: UNKNOWN DOSE
     Dates: start: 20100201

REACTIONS (1)
  - ARRHYTHMIA [None]
